FAERS Safety Report 9917175 (Version 3)
Quarter: 2015Q3

REPORT INFORMATION
  Report Type: Spontaneous
  Country: US (occurrence: US)
  Receive Date: 20140221
  Receipt Date: 20150727
  Transmission Date: 20151125
  Serious: No
  Sender: FDA-Public Use
  Company Number: US-GILEAD-2012-0059076

PATIENT
  Age: 61 Year
  Sex: Female
  Weight: 75.28 kg

DRUGS (4)
  1. VALTREX [Concomitant]
     Active Substance: VALACYCLOVIR HYDROCHLORIDE
     Indication: HIV INFECTION
  2. NAPROSYN [Concomitant]
     Active Substance: NAPROXEN
  3. COMPLERA [Suspect]
     Active Substance: EMTRICITABINE\RILPIVIRINE HYDROCHLORIDE\TENOFOVIR DISOPROXIL FUMARATE
     Indication: HIV INFECTION
     Dosage: 1 DF, QD
     Route: 048
     Dates: start: 20120411
  4. ZOVIRAX [Concomitant]
     Active Substance: ACYCLOVIR
     Indication: HIV INFECTION

REACTIONS (1)
  - Skin hypopigmentation [Not Recovered/Not Resolved]

NARRATIVE: CASE EVENT DATE: 20120725
